FAERS Safety Report 6209171-8 (Version None)
Quarter: 2009Q2

REPORT INFORMATION
  Report Type: 
  Country: None (occurrence: None)
  Receive Date: 20090529
  Receipt Date: 20090518
  Transmission Date: 20091009
  Serious: No
  Sender: FDA-Public Use
  Company Number: B0574655A

PATIENT
  Age: 26 Year
  Sex: Female

DRUGS (4)
  1. RELENZA [Suspect]
     Indication: INFLUENZA
     Dosage: 5MG TWICE PER DAY
     Route: 055
     Dates: start: 20090514, end: 20090518
  2. ASVERIN [Concomitant]
     Indication: INFLUENZA
     Dosage: 1.2G PER DAY
     Route: 048
     Dates: start: 20090514, end: 20090518
  3. OXATOMIDE [Concomitant]
     Indication: INFLUENZA
     Dosage: .99G PER DAY
     Route: 048
     Dates: start: 20090514, end: 20090518
  4. PYRINAZIN [Concomitant]
     Dosage: .99G PER DAY
     Route: 048
     Dates: start: 20090514, end: 20090518

REACTIONS (1)
  - DRUG EXPOSURE DURING PREGNANCY [None]
